FAERS Safety Report 9513259 (Version 1)
Quarter: 2013Q1

REPORT INFORMATION
  Report Type: Spontaneous
  Country: US (occurrence: None)
  Receive Date: 20130305
  Receipt Date: 20130305
  Transmission Date: 20140127
  Serious: Yes (Hospitalization, Other)
  Sender: FDA-Public Use
  Company Number: 163-21880-12080296

PATIENT
  Age: 88 Year
  Sex: Male

DRUGS (5)
  1. REVLIMID [Suspect]
     Indication: PLASMA CELL MYELOMA
     Dosage: 15 MG, 21 IN 28 D, PO
     Route: 048
     Dates: start: 20081217
  2. ISOSORBIDE MONONITRATE ( ISOSORBIDE MONONITRATE) ( UNKNOWN) [Concomitant]
  3. CLOPIDOGREL ( CLOPIDOGREL) ( UNKNOWN) [Concomitant]
  4. METOPROLOL TARTRATE ( METOPROLOL TARTRATE) ( UNKNOWN) [Concomitant]
  5. LIPITOR ( ATORVASTATIN) (UNKNOWN) [Concomitant]

REACTIONS (2)
  - Angina pectoris [None]
  - Drug dose omission [None]
